FAERS Safety Report 9013933 (Version 1)
Quarter: 2013Q1

REPORT INFORMATION
  Report Type: Spontaneous
  Country: US (occurrence: None)
  Receive Date: 20130109
  Receipt Date: 20130109
  Transmission Date: 20140127
  Serious: No
  Sender: FDA-Public Use
  Company Number: None

PATIENT
  Age: 24 Year
  Sex: Female
  Weight: 108.86 kg

DRUGS (1)
  1. PRISTIQ, 100 MG [Suspect]
     Indication: GENERALISED ANXIETY DISORDER

REACTIONS (2)
  - Alopecia [None]
  - Alopecia [None]
